FAERS Safety Report 26010456 (Version 1)
Quarter: 2025Q4

REPORT INFORMATION
  Report Type: Spontaneous
  Country: US (occurrence: US)
  Receive Date: 20251107
  Receipt Date: 20251107
  Transmission Date: 20260118
  Serious: No
  Sender: CHATTEM
  Company Number: US-OPELLA-2025OHG031915

PATIENT
  Sex: Female

DRUGS (1)
  1. NASACORT ALLERGY 24HR [Suspect]
     Active Substance: TRIAMCINOLONE ACETONIDE
     Indication: Nasal polyps
     Dosage: STRENGTH: 55 G/DOSE?2 SPRAYS WITH EACH NOSTRIL AND ALL THE OTHER DAYS, IT^S BEEN 1 SPRAY EACH NOSTRI
     Route: 065
     Dates: start: 202510

REACTIONS (2)
  - Product use in unapproved indication [Unknown]
  - No adverse event [Unknown]
